FAERS Safety Report 8059559-8 (Version None)
Quarter: 2012Q1

REPORT INFORMATION
  Report Type: 
  Country: None (occurrence: None)
  Receive Date: 20120120
  Receipt Date: 20120113
  Transmission Date: 20120608
  Serious: Yes (Death)
  Sender: FDA-Public Use
  Company Number: US-UCBSA-049696

PATIENT
  Age: 54 Year
  Sex: Female

DRUGS (2)
  1. KEPPRA XR [Suspect]
     Dosage: DRUG STRENGTH 750
  2. VIMPAT [Suspect]
     Dosage: DRUG STRENGTH 200

REACTIONS (1)
  - DEATH [None]
